FAERS Safety Report 24444579 (Version 1)
Quarter: 2024Q4

REPORT INFORMATION
  Report Type: Spontaneous
  Country: US (occurrence: None)
  Receive Date: 20241015
  Receipt Date: 20241015
  Transmission Date: 20250115
  Serious: Yes (Hospitalization)
  Sender: Public
  Company Number: None

PATIENT
  Age: 82 Year
  Sex: Male

DRUGS (1)
  1. RIVAROXABAN [Suspect]
     Active Substance: RIVAROXABAN
     Indication: Atrial fibrillation
     Dates: start: 20221011, end: 20240524

REACTIONS (4)
  - Epistaxis [None]
  - Platelet transfusion [None]
  - Red blood cell transfusion [None]
  - Anaemia [None]

NARRATIVE: CASE EVENT DATE: 20240425
